FAERS Safety Report 10430569 (Version 1)
Quarter: 2014Q3

REPORT INFORMATION
  Report Type: Spontaneous
  Country: US (occurrence: None)
  Receive Date: 20140903
  Receipt Date: 20140903
  Transmission Date: 20150326
  Serious: Yes (Hospitalization)
  Sender: FDA-Public Use
  Company Number: None

PATIENT
  Age: 72 Year
  Sex: Female
  Weight: 90.72 kg

DRUGS (6)
  1. ETANERCEPT [Concomitant]
     Active Substance: ETANERCEPT
  2. DYRENIUM [Concomitant]
     Active Substance: TRIAMTERENE
  3. TENORMIN [Concomitant]
     Active Substance: ATENOLOL
  4. GAVASON [Concomitant]
  5. NARCAN [Suspect]
     Active Substance: NALOXONE HYDROCHLORIDE
     Route: 045
  6. NORVASC [Concomitant]
     Active Substance: AMLODIPINE BESYLATE

REACTIONS (2)
  - Syringe issue [None]
  - Product container issue [None]

NARRATIVE: CASE EVENT DATE: 201408
